FAERS Safety Report 4849693-5 (Version None)
Quarter: 2005Q4

REPORT INFORMATION
  Report Type: 
  Country: None (occurrence: None)
  Receive Date: 20051115
  Receipt Date: 20050819
  Transmission Date: 20060501
  Serious: No
  Sender: FDA-Public Use
  Company Number: S05-USA-04077-01

PATIENT
  Age: 81 Year
  Sex: Male

DRUGS (13)
  1. NAMENDA [Suspect]
     Indication: DEMENTIA ALZHEIMER'S TYPE
     Dosage: 5 MG QD PO
     Route: 048
     Dates: start: 20050726, end: 20050801
  2. NAMENDA [Suspect]
     Indication: DEMENTIA ALZHEIMER'S TYPE
     Dosage: 5 MG BID PO
     Route: 048
     Dates: start: 20050802, end: 20050808
  3. NAMENDA [Suspect]
     Indication: DEMENTIA ALZHEIMER'S TYPE
     Dosage: 15 MG QD PO
     Route: 048
     Dates: start: 20050809, end: 20050815
  4. NAMENDA [Suspect]
     Indication: DEMENTIA ALZHEIMER'S TYPE
     Dosage: 10 MG BID PO
     Route: 048
     Dates: start: 20050816, end: 20050101
  5. NAMENDA [Suspect]
     Indication: DEMENTIA ALZHEIMER'S TYPE
     Dates: start: 20050101, end: 20050819
  6. MIRAPEX [Suspect]
     Indication: PARKINSONISM
     Dosage: 0.25 MG TID
     Dates: end: 20050101
  7. MIRAPEX [Suspect]
     Indication: PARKINSONISM
     Dosage: 0.125 MG TID
     Dates: end: 20050101
  8. MIRAPEX [Suspect]
     Indication: PARKINSONISM
     Dosage: 0.125 MG TID
     Dates: start: 20050101
  9. NEXIUM [Concomitant]
  10. BENICAR [Concomitant]
  11. ASPIRIN [Concomitant]
  12. NIASPAN [Concomitant]
  13. LIPITOR [Concomitant]

REACTIONS (2)
  - HALLUCINATION, VISUAL [None]
  - LIBIDO INCREASED [None]
